FAERS Safety Report 11680463 (Version 2)
Quarter: 2015Q4

REPORT INFORMATION
  Report Type: Spontaneous
  Country: US (occurrence: US)
  Receive Date: 20151027
  Receipt Date: 20151104
  Transmission Date: 20160304
  Serious: No
  Sender: FDA-Public Use
  Company Number: US-ELI_LILLY_AND_COMPANY-US201009007895

PATIENT
  Age: 59 Year
  Sex: Female

DRUGS (8)
  1. FORTEO [Suspect]
     Active Substance: TERIPARATIDE
     Dosage: 20 UG, QD
  2. FORTEO [Suspect]
     Active Substance: TERIPARATIDE
     Dosage: 20 UG, DAILY (1/D)
  3. FORTEO [Suspect]
     Active Substance: TERIPARATIDE
     Dosage: 20 UG, QD
  4. FORTEO [Suspect]
     Active Substance: TERIPARATIDE
     Dosage: 20 UG, DAILY (1/D)
  5. FORTEO [Suspect]
     Active Substance: TERIPARATIDE
     Indication: OSTEOPOROSIS
     Dosage: 20 UG, DAILY (1/D)
     Dates: start: 20100922
  6. FORTEO [Suspect]
     Active Substance: TERIPARATIDE
     Dosage: 20 UG, QD
  7. FORTEO [Suspect]
     Active Substance: TERIPARATIDE
     Dosage: 20 UG, DAILY (1/D)
  8. ENBREL [Concomitant]
     Active Substance: ETANERCEPT

REACTIONS (24)
  - Infection [Unknown]
  - Bone pain [Unknown]
  - Pruritus generalised [Unknown]
  - Somnolence [Unknown]
  - Malaise [Unknown]
  - Constipation [Unknown]
  - Arthritis [Unknown]
  - Injection site swelling [Unknown]
  - Influenza like illness [Unknown]
  - Dysphonia [Unknown]
  - Pain in jaw [Unknown]
  - Ear pain [Unknown]
  - Pain in extremity [Unknown]
  - Musculoskeletal stiffness [Unknown]
  - Dyspnoea [Unknown]
  - Injection site pain [Unknown]
  - Gait disturbance [Unknown]
  - Feeling abnormal [Unknown]
  - Memory impairment [Unknown]
  - Pain [Unknown]
  - Lung disorder [Unknown]
  - Contusion [Unknown]
  - Joint stiffness [Unknown]
  - Asthenia [Unknown]

NARRATIVE: CASE EVENT DATE: 20100927
